FAERS Safety Report 10170943 (Version 1)
Quarter: 2014Q2

REPORT INFORMATION
  Report Type: Spontaneous
  Country: US (occurrence: None)
  Receive Date: 20140513
  Receipt Date: 20140513
  Transmission Date: 20141212
  Serious: Yes (Hospitalization)
  Sender: FDA-Public Use
  Company Number: None

PATIENT
  Age: 53 Year
  Sex: Male

DRUGS (11)
  1. WARFARIN [Suspect]
     Indication: ATRIAL FIBRILLATION
     Dosage: PER AMC
     Route: 048
     Dates: start: 20130130, end: 20130207
  2. AMIODARONE [Concomitant]
  3. CARVEDILOL [Concomitant]
  4. CLOPIDOGREL [Concomitant]
  5. DIGOXIN [Concomitant]
  6. FENOFIBRATE [Concomitant]
  7. IRON [Concomitant]
  8. INSULIN ASPART [Concomitant]
  9. INSULIN DETEMIR [Concomitant]
  10. LEVOTHYROXINE [Concomitant]
  11. LISINOPRIL [Concomitant]

REACTIONS (6)
  - Chest pain [None]
  - Dyspnoea [None]
  - International normalised ratio increased [None]
  - Vitamin K decreased [None]
  - Haemoptysis [None]
  - Faeces discoloured [None]
